FAERS Safety Report 7190284-1 (Version None)
Quarter: 2010Q4

REPORT INFORMATION
  Report Type: 
  Country: None (occurrence: None)
  Receive Date: 20101223
  Receipt Date: 20101217
  Transmission Date: 20110411
  Serious: No
  Sender: FDA-Public Use
  Company Number: US-BIOGENIDEC-2010BI044285

PATIENT
  Sex: Female

DRUGS (1)
  1. AVONEX [Suspect]
     Indication: MULTIPLE SCLEROSIS
     Route: 030
     Dates: start: 20031001

REACTIONS (5)
  - DRY SKIN [None]
  - ERYTHEMA [None]
  - FATIGUE [None]
  - INFLUENZA LIKE ILLNESS [None]
  - LETHARGY [None]
